FAERS Safety Report 15903184 (Version 1)
Quarter: 2019Q1

REPORT INFORMATION
  Report Type: Spontaneous
  Country: FR (occurrence: FR)
  Receive Date: 20190202
  Receipt Date: 20190202
  Transmission Date: 20190417
  Serious: Yes (Hospitalization)
  Sender: FDA-Public Use
  Company Number: FR-TEVA-2019-FR-1006518

PATIENT
  Age: 61 Year
  Sex: Female
  Weight: 45 kg

DRUGS (2)
  1. ZOLPIDEM [Suspect]
     Active Substance: ZOLPIDEM\ZOLPIDEM TARTRATE
     Indication: POISONING DELIBERATE
     Dosage: NOT SPECIFIED
     Route: 048
     Dates: start: 20190111, end: 20190111
  2. DIAZEPAM. [Suspect]
     Active Substance: DIAZEPAM
     Indication: POISONING DELIBERATE
     Dosage: NOT SPECIFIED
     Route: 048
     Dates: start: 20190111, end: 20190111

REACTIONS (4)
  - Transaminases increased [Not Recovered/Not Resolved]
  - Hypotension [Recovered/Resolved]
  - Bradypnoea [Recovered/Resolved]
  - Coma [Recovered/Resolved]

NARRATIVE: CASE EVENT DATE: 20190111
